FAERS Safety Report 5210404-5 (Version None)
Quarter: 2007Q1

REPORT INFORMATION
  Report Type: 
  Country: None (occurrence: None)
  Receive Date: 20070117
  Receipt Date: 20070111
  Transmission Date: 20070707
  Serious: Yes (Death, Hospitalization)
  Sender: FDA-Public Use
  Company Number: GB-JNJFOC-20060706143

PATIENT
  Age: 91 Year
  Sex: Female

DRUGS (6)
  1. IBUPROFEN [Suspect]
     Indication: OSTEOARTHRITIS
     Route: 061
  2. DICLOFENAC SODIUM [Suspect]
     Indication: OSTEOARTHRITIS
     Route: 061
  3. SPIRONOLACTONE [Suspect]
     Indication: HYPERTENSION
  4. BUMETANIDE [Suspect]
     Indication: HYPERTENSION
  5. DIGOXIN [Suspect]
     Indication: ATRIAL FIBRILLATION
     Route: 048
  6. UNSPECIFIED MEDICATION [Concomitant]
     Indication: LOWER RESPIRATORY TRACT INFECTION

REACTIONS (1)
  - RENAL FAILURE [None]
